FAERS Safety Report 16838753 (Version 3)
Quarter: 2020Q1

REPORT INFORMATION
  Report Type: Report from Study
  Country: US (occurrence: US)
  Receive Date: 20190923
  Receipt Date: 20200324
  Transmission Date: 20200409
  Serious: Yes (Hospitalization)
  Sender: FDA-Public Use
  Company Number: US-JNJFOC-20190919519

PATIENT
  Age: 72 Year
  Sex: Female
  Weight: 67.1 kg

DRUGS (2)
  1. STELARA [Suspect]
     Active Substance: USTEKINUMAB
     Indication: PSORIASIS
     Route: 058
     Dates: start: 201411, end: 201802
  2. IXEKIZUMAB [Concomitant]
     Active Substance: IXEKIZUMAB
     Route: 065
     Dates: start: 201810, end: 201906

REACTIONS (1)
  - Lung neoplasm malignant [Not Recovered/Not Resolved]

NARRATIVE: CASE EVENT DATE: 20190703
